FAERS Safety Report 12135239 (Version 2)
Quarter: 2016Q1

REPORT INFORMATION
  Report Type: Report from Study
  Country: FR (occurrence: FR)
  Receive Date: 20160301
  Receipt Date: 20160309
  Transmission Date: 20160526
  Serious: Yes (Hospitalization)
  Sender: FDA-Public Use
  Company Number: FR-ROCHE-1717108

PATIENT
  Age: 47 Year
  Sex: Female

DRUGS (7)
  1. BEVACIZUMAB [Suspect]
     Active Substance: BEVACIZUMAB
     Indication: OVARIAN CANCER
     Route: 065
     Dates: start: 20151109, end: 20160205
  2. SPASFON (FRANCE) [Concomitant]
     Active Substance: PHLOROGLUCINOL
     Route: 042
  3. LYRICA [Concomitant]
     Active Substance: PREGABALIN
     Route: 048
  4. PARACETAMOL [Concomitant]
     Active Substance: ACETAMINOPHEN
     Route: 042
  5. CLAFORAN (FRANCE) [Concomitant]
     Route: 042
  6. IXPRIM [Concomitant]
     Active Substance: ACETAMINOPHEN\TRAMADOL HYDROCHLORIDE
     Route: 048
  7. BLINDED OLAPARIB/PLACEBO [Suspect]
     Active Substance: OLAPARIB
     Indication: OVARIAN CANCER
     Route: 065
     Dates: start: 20151109, end: 20160223

REACTIONS (2)
  - General physical health deterioration [Not Recovered/Not Resolved]
  - Pyelonephritis [Recovered/Resolved]

NARRATIVE: CASE EVENT DATE: 20160223
